FAERS Safety Report 9012211 (Version 2)
Quarter: 2013Q2

REPORT INFORMATION
  Report Type: Spontaneous
  Country: CN (occurrence: CN)
  Receive Date: 20130114
  Receipt Date: 20130425
  Transmission Date: 20140414
  Serious: Yes (Hospitalization, Other)
  Sender: FDA-Public Use
  Company Number: CN-009507513-1201CHN00152

PATIENT
  Sex: Male
  Weight: 17 kg

DRUGS (12)
  1. SINGULAIR [Suspect]
     Indication: ASTHMA
     Dosage: 4 MG, QD
     Route: 048
     Dates: start: 20110915, end: 20110917
  2. SINGULAIR [Suspect]
     Indication: BRONCHOPNEUMONIA
  3. SINGULAIR [Suspect]
     Indication: BRONCHITIS
  4. COMBIVENT [Concomitant]
     Indication: ASTHMA
     Route: 055
     Dates: start: 20110915
  5. COMBIVENT [Concomitant]
     Indication: BRONCHOPNEUMONIA
  6. METICORTEN [Concomitant]
     Indication: ASTHMA
     Route: 048
     Dates: start: 20110915
  7. METICORTEN [Concomitant]
     Indication: BRONCHOPNEUMONIA
  8. AZITHROMYCIN [Concomitant]
     Indication: ASTHMA
     Route: 048
     Dates: start: 20110915
  9. AZITHROMYCIN [Concomitant]
     Indication: BRONCHOPNEUMONIA
  10. AMBROXOL HYDROCHLORIDE (+) CLENBUTEROL HYDROCHLORIDE [Concomitant]
     Indication: ASTHMA
     Route: 048
     Dates: start: 20110915
  11. AMBROXOL HYDROCHLORIDE (+) CLENBUTEROL HYDROCHLORIDE [Concomitant]
     Indication: BRONCHOPNEUMONIA
  12. PULMICORT [Concomitant]
     Indication: ASTHMA
     Dosage: UNK
     Route: 055
     Dates: start: 20110915

REACTIONS (4)
  - Epilepsy [Not Recovered/Not Resolved]
  - Bronchitis [Unknown]
  - Pyrexia [Recovered/Resolved]
  - Drug ineffective [Unknown]
